FAERS Safety Report 9842760 (Version 1)
Quarter: 2014Q1

REPORT INFORMATION
  Report Type: Spontaneous
  Country: NO (occurrence: NO)
  Receive Date: 20140124
  Receipt Date: 20140124
  Transmission Date: 20141002
  Serious: Yes (Hospitalization, Other)
  Sender: FDA-Public Use
  Company Number: NO-ASTRAZENECA-2014SE03520

PATIENT
  Age: 42 Year
  Sex: Male

DRUGS (4)
  1. ATACAND PLUS [Suspect]
     Indication: HYPERTENSION
     Dosage: 16 + 12.5 MG, UNKNOWN FREQUENCY
     Route: 048
  2. GENTAMICIN [Suspect]
     Indication: DEVICE RELATED INFECTION
     Route: 042
     Dates: start: 20131213, end: 20131214
  3. EKVACILLIN [Concomitant]
     Route: 048
     Dates: start: 20131213
  4. DICLOXACILLIN [Concomitant]
     Indication: PROPHYLAXIS

REACTIONS (3)
  - Device related infection [Unknown]
  - Renal failure [Not Recovered/Not Resolved]
  - Blood creatinine increased [Not Recovered/Not Resolved]
